FAERS Safety Report 5595266-9 (Version None)
Quarter: 2008Q1

REPORT INFORMATION
  Report Type: 
  Country: None (occurrence: None)
  Receive Date: 20080117
  Receipt Date: 20080109
  Transmission Date: 20080703
  Serious: Yes (Death)
  Sender: FDA-Public Use
  Company Number: US-PFIZER INC-2008003432

PATIENT
  Age: 32 Year
  Sex: Female

DRUGS (10)
  1. VERAPAMIL HYDROCHLORIDE [Suspect]
     Route: 048
  2. MORPHINE [Suspect]
  3. ACETAMINOPHEN [Suspect]
  4. DIPHENHYDRAMINE HCL [Suspect]
  5. PROMETHAZINE [Suspect]
  6. CYCLOBENZAPRINE HCL [Suspect]
  7. TEMAZEPAM [Suspect]
  8. ZOLPIDEM [Suspect]
  9. CARISOPRODOL [Suspect]
  10. OXYCODONE [Suspect]

REACTIONS (1)
  - DEATH [None]
